FAERS Safety Report 20291980 (Version 2)
Quarter: 2022Q2

REPORT INFORMATION
  Report Type: Spontaneous
  Country: CA (occurrence: CA)
  Receive Date: 20220104
  Receipt Date: 20220406
  Transmission Date: 20220721
  Serious: Yes (Other)
  Sender: FDA-Public Use
  Company Number: CA-SA-SAC20211230000238

PATIENT
  Sex: Female

DRUGS (6)
  1. AUBAGIO [Suspect]
     Active Substance: TERIFLUNOMIDE
     Indication: Product used for unknown indication
  2. OCRELIZUMAB [Suspect]
     Active Substance: OCRELIZUMAB
     Indication: Relapsing-remitting multiple sclerosis
     Dosage: 300 MG, QOW, THEN 600MG EVERY 6 MONTH
     Route: 042
     Dates: start: 20201029
  3. RIZATRIPTAN [Concomitant]
     Active Substance: RIZATRIPTAN
  4. ALBUTEROL [Concomitant]
     Active Substance: ALBUTEROL
  5. TOPIRAMATE [Concomitant]
     Active Substance: TOPIRAMATE
     Indication: Pain
     Dosage: 50 MG, QOD
  6. VENLAFAXINE HYDROCHLORIDE [Concomitant]
     Active Substance: VENLAFAXINE HYDROCHLORIDE
     Indication: Pain
     Dosage: 225 MG

REACTIONS (2)
  - Optic neuritis [Not Recovered/Not Resolved]
  - Pain [Recovered/Resolved]
